FAERS Safety Report 7817437-0 (Version None)
Quarter: 2011Q4

REPORT INFORMATION
  Report Type: 
  Country: None (occurrence: None)
  Receive Date: 20111017
  Receipt Date: 20111004
  Transmission Date: 20120403
  Serious: Yes (Disabling)
  Sender: FDA-Public Use
  Company Number: AU-B.I. PHARMACEUTICALS,INC./RIDGEFIELD-2011-AU-01790AU

PATIENT
  Sex: Male
  Weight: 68 kg

DRUGS (6)
  1. PRADAXA [Suspect]
     Indication: ATRIAL FIBRILLATION
     Dosage: 220 MG
     Dates: start: 20110906, end: 20110928
  2. RAMIPRIL [Concomitant]
     Dates: start: 20040101
  3. DIGOXIN [Concomitant]
  4. LIPITOR [Concomitant]
     Dates: start: 20040101
  5. VASOCARDOL [Concomitant]
     Dates: start: 20040101
  6. TAMBOCOR [Concomitant]
     Dates: start: 20040101

REACTIONS (2)
  - CONFUSIONAL STATE [None]
  - DISORIENTATION [None]
